FAERS Safety Report 8846081 (Version 1)
Quarter: 2012Q4

REPORT INFORMATION
  Report Type: 
  Country: DK (occurrence: DK)
  Receive Date: 20121017
  Receipt Date: 20121017
  Transmission Date: 20130627
  Serious: Yes (Hospitalization)
  Sender: FDA-Public Use
  Company Number: PHHY2012DK091696

PATIENT
  Age: 40 Year
  Sex: Female
  Weight: 93 kg

DRUGS (6)
  1. EPIRUBICIN [Suspect]
     Indication: BREAST CANCER
     Dosage: 190 mg, UNK
     Route: 042
     Dates: start: 20120604
  2. FLUOROURACIL [Suspect]
     Indication: BREAST CANCER
     Dosage: 1050 mg, UNK
     Route: 042
     Dates: start: 20120604
  3. SENDOXAN [Suspect]
     Indication: BREAST CANCER
     Dosage: 1050 mg, UNK
     Route: 042
     Dates: start: 20120604, end: 20120626
  4. SENDOXAN [Suspect]
     Dates: start: 20120702
  5. ADALAT [Concomitant]
     Dosage: 60 mg, UNK
     Dates: start: 20081007
  6. ELTROXIN [Concomitant]
     Dosage: 50 ug, QD
     Dates: start: 20110913

REACTIONS (3)
  - Inflammation of wound [Recovered/Resolved]
  - Pyrexia [Recovered/Resolved]
  - Neutrophil count decreased [Unknown]
